FAERS Safety Report 16948028 (Version 2)
Quarter: 2021Q2

REPORT INFORMATION
  Report Type: Spontaneous
  Country: US (occurrence: US)
  Receive Date: 20191022
  Receipt Date: 20210505
  Transmission Date: 20210716
  Serious: No
  Sender: FDA-Public Use
  Company Number: US-ROCHE-2338690

PATIENT
  Sex: Male

DRUGS (1)
  1. ESBRIET [Suspect]
     Active Substance: PIRFENIDONE
     Indication: IDIOPATHIC PULMONARY FIBROSIS
     Route: 048
     Dates: start: 20190408

REACTIONS (6)
  - Arthralgia [Unknown]
  - Productive cough [Unknown]
  - Blister [Unknown]
  - Pruritus [Unknown]
  - Cough [Unknown]
  - Back pain [Unknown]
